FAERS Safety Report 13457962 (Version 4)
Quarter: 2017Q2

REPORT INFORMATION
  Report Type: Report from Study
  Country: CA (occurrence: CA)
  Receive Date: 20170419
  Receipt Date: 20170525
  Transmission Date: 20170830
  Serious: Yes (Death)
  Sender: FDA-Public Use
  Company Number: CA-BEH-2017079621

PATIENT
  Age: 30 Year
  Sex: Male

DRUGS (1)
  1. HIZENTRA [Suspect]
     Active Substance: HUMAN IMMUNOGLOBULIN G
     Indication: PRIMARY IMMUNODEFICIENCY SYNDROME
     Dosage: 14 G, QW
     Route: 058
     Dates: start: 20160519

REACTIONS (8)
  - Gastritis [Fatal]
  - Renal failure [Fatal]
  - Abdominal pain upper [Fatal]
  - Hepatic failure [Fatal]
  - Vomiting [Fatal]
  - Hypovolaemia [Fatal]
  - Gastric haemorrhage [Fatal]
  - Gastrointestinal haemorrhage [Fatal]
